FAERS Safety Report 23618464 (Version 1)
Quarter: 2024Q1

REPORT INFORMATION
  Report Type: Spontaneous
  Country: US (occurrence: US)
  Receive Date: 20240311
  Receipt Date: 20240311
  Transmission Date: 20240410
  Serious: No
  Sender: FDA-Public Use
  Company Number: US-Millicent Holdings Ltd.-MILL20240759

PATIENT
  Age: 57 Year
  Sex: Female

DRUGS (2)
  1. INTRAROSA [Suspect]
     Active Substance: PRASTERONE
     Indication: Vulvovaginal pain
     Dosage: 1
     Route: 067
     Dates: start: 202311
  2. INTRAROSA [Suspect]
     Active Substance: PRASTERONE
     Indication: Vulvovaginal injury
     Dosage: UNKNOWN
     Route: 067
     Dates: end: 202311

REACTIONS (2)
  - Off label use [Not Recovered/Not Resolved]
  - Product blister packaging issue [None]
